FAERS Safety Report 23616892 (Version 1)
Quarter: 2024Q1

REPORT INFORMATION
  Report Type: Spontaneous
  Country: US (occurrence: US)
  Receive Date: 20240311
  Receipt Date: 20240311
  Transmission Date: 20240409
  Serious: Yes (Hospitalization)
  Sender: FDA-Public Use
  Company Number: US-GTI-000175

PATIENT
  Age: 60 Year
  Sex: Female

DRUGS (3)
  1. PREDNISONE [Suspect]
     Active Substance: PREDNISONE
     Route: 065
  2. TACROLIMUS [Suspect]
     Active Substance: TACROLIMUS
     Route: 065
  3. MYCOPHENOLATE MOFETIL [Suspect]
     Active Substance: MYCOPHENOLATE MOFETIL
     Route: 065

REACTIONS (5)
  - Substance-induced psychotic disorder [Recovered/Resolved]
  - Condition aggravated [Recovered/Resolved]
  - Hallucination, auditory [Recovered/Resolved]
  - Paranoia [Recovered/Resolved]
  - Treatment noncompliance [Unknown]
